FAERS Safety Report 18674895 (Version 1)
Quarter: 2020Q4

REPORT INFORMATION
  Report Type: Report from Study
  Country: BR (occurrence: BR)
  Receive Date: 20201229
  Receipt Date: 20201229
  Transmission Date: 20210114
  Serious: Yes (Other)
  Sender: FDA-Public Use
  Company Number: PHHY2018BR006738

PATIENT
  Age: 40 Year
  Sex: Male
  Weight: 110.2 kg

DRUGS (4)
  1. COSENTYX [Suspect]
     Active Substance: SECUKINUMAB
     Indication: PSORIASIS
     Dosage: UNK
     Route: 058
     Dates: start: 20180201
  2. COSENTYX [Suspect]
     Active Substance: SECUKINUMAB
     Dosage: 300 MG, UNK
     Route: 058
     Dates: start: 20180208
  3. PARACETAMOL [Suspect]
     Active Substance: ACETAMINOPHEN
     Indication: ADVERSE DRUG REACTION
     Dosage: UNK (40 TABLETS)
     Route: 065
  4. COSENTYX [Suspect]
     Active Substance: SECUKINUMAB
     Indication: PSORIATIC ARTHROPATHY
     Dosage: 300 MG, QW
     Route: 058
     Dates: start: 20180111

REACTIONS (21)
  - Pruritus [Not Recovered/Not Resolved]
  - Insomnia [Recovered/Resolved]
  - Skin exfoliation [Unknown]
  - Malaise [Recovering/Resolving]
  - Anxiety [Unknown]
  - Dizziness [Recovering/Resolving]
  - Therapeutic response delayed [Unknown]
  - Wound complication [Unknown]
  - Sleep disorder [Unknown]
  - Headache [Recovered/Resolved]
  - Ageusia [Recovered/Resolved]
  - Adverse drug reaction [Unknown]
  - Dizziness [Recovered/Resolved]
  - Headache [Recovered/Resolved]
  - Anosmia [Recovered/Resolved]
  - Headache [Recovering/Resolving]
  - Weight increased [Recovering/Resolving]
  - Eating disorder [Unknown]
  - Vertigo [Recovering/Resolving]
  - Drug intolerance [Unknown]
  - Pyrexia [Recovered/Resolved]

NARRATIVE: CASE EVENT DATE: 20180208
